FAERS Safety Report 19555954 (Version 1)
Quarter: 2021Q3

REPORT INFORMATION
  Report Type: Spontaneous
  Country: DK (occurrence: DK)
  Receive Date: 20210715
  Receipt Date: 20210715
  Transmission Date: 20211014
  Serious: Yes (Other)
  Sender: FDA-Public Use
  Company Number: DK-JUBILANT CADISTA PHARMACEUTICALS-2021JUB00205

PATIENT
  Age: 65 Year
  Sex: Male

DRUGS (9)
  1. ITRACONAZOLE. [Suspect]
     Active Substance: ITRACONAZOLE
     Indication: ONYCHOMYCOSIS
     Dosage: 200 MG/DAY INITIALLY IN 3?MONTH COURSES
     Route: 048
  2. ITRACONAZOLE. [Suspect]
     Active Substance: ITRACONAZOLE
     Dosage: 100 MG, 2X/WEEK FOR MAINTENANCE
     Route: 048
  3. SIMVASTATIN. [Concomitant]
     Active Substance: SIMVASTATIN
     Dosage: 40 MG
     Route: 065
  4. LOSARTAN. [Concomitant]
     Active Substance: LOSARTAN
     Dosage: 100 MG
     Route: 065
  5. FUROSEMIDE. [Concomitant]
     Active Substance: FUROSEMIDE
     Dosage: 80 MG
     Route: 065
  6. ITRACONAZOLE. [Suspect]
     Active Substance: ITRACONAZOLE
     Dosage: 100 MG, 1X/DAY
     Route: 048
  7. EZETIMIBE. [Concomitant]
     Active Substance: EZETIMIBE
     Dosage: 10 MG
     Route: 065
  8. AMLODIPINE [Concomitant]
     Active Substance: AMLODIPINE BESYLATE
     Dosage: 5 MG
     Route: 065
  9. AMOROLFINE NAIL VARNISH [Concomitant]
     Indication: ONYCHOMYCOSIS
     Dosage: UNK
     Route: 061

REACTIONS (1)
  - Pseudoaldosteronism [Recovered/Resolved]

NARRATIVE: CASE EVENT DATE: 202005
